FAERS Safety Report 9002396 (Version 4)
Quarter: 2013Q1

REPORT INFORMATION
  Report Type: Spontaneous
  Country: US (occurrence: None)
  Receive Date: 20121203
  Receipt Date: 20130205
  Transmission Date: 20140127
  Serious: Yes (Disabling, Other)
  Sender: FDA-Public Use
  Company Number: 219648

PATIENT
  Age: 72 Year
  Sex: Male

DRUGS (3)
  1. PICATO [Suspect]
     Indication: ACTINIC KERATOSIS
     Dosage: USE SCALP
  2. FISH OIL [Concomitant]
  3. FLOMAX [Concomitant]

REACTIONS (16)
  - Ophthalmic herpes zoster [None]
  - Application site vesicles [None]
  - Application site erythema [None]
  - Application site scab [None]
  - Bacterial infection [None]
  - Incorrect dose administered [None]
  - Inappropriate schedule of drug administration [None]
  - Application site pustules [None]
  - Application site vesicles [None]
  - Application site pain [None]
  - Skin necrosis [None]
  - Eye swelling [None]
  - Fatigue [None]
  - Body temperature increased [None]
  - Drug administration error [None]
  - Drug administered at inappropriate site [None]
